FAERS Safety Report 8873111 (Version 1)
Quarter: 2012Q4

REPORT INFORMATION
  Report Type: Spontaneous
  Country: US (occurrence: None)
  Receive Date: 20121026
  Receipt Date: 20121026
  Transmission Date: 20130627
  Serious: No
  Sender: FDA-Public Use
  Company Number: None

PATIENT
  Age: 69 Year
  Sex: Male

DRUGS (3)
  1. REVLIMID [Suspect]
  2. XALATAN [Concomitant]
  3. ALBUTEROL INHALER [Concomitant]

REACTIONS (4)
  - Rash pruritic [None]
  - Erythema [None]
  - Neutropenia [None]
  - Skin plaque [None]
